FAERS Safety Report 14056685 (Version 1)
Quarter: 2017Q4

REPORT INFORMATION
  Report Type: Spontaneous
  Country: GB (occurrence: GB)
  Receive Date: 20171006
  Receipt Date: 20171006
  Transmission Date: 20180321
  Serious: Yes (Other)
  Sender: FDA-Public Use
  Company Number: GB-TEVA-811605ACC

PATIENT
  Age: 67 Year
  Sex: Male
  Weight: 76.2 kg

DRUGS (1)
  1. TEVA UK TAMSULOSIN MODIFIED RELEASE [Suspect]
     Active Substance: TAMSULOSIN
     Indication: NOCTURIA
     Dosage: 400 MILLIGRAM DAILY;
     Route: 048
     Dates: start: 201610, end: 20170915

REACTIONS (4)
  - Loss of consciousness [Recovered/Resolved]
  - Dizziness [Not Recovered/Not Resolved]
  - Opisthotonus [Recovered/Resolved]
  - Cold sweat [Unknown]

NARRATIVE: CASE EVENT DATE: 201702
